FAERS Safety Report 4511441-6 (Version None)
Quarter: 2004Q4

REPORT INFORMATION
  Report Type: 
  Country: None (occurrence: None)
  Receive Date: 20041129
  Receipt Date: 20040812
  Transmission Date: 20050328
  Serious: No
  Sender: FDA-Public Use
  Company Number: US-BRISTOL-MYERS SQUIBB COMPANY-12669479

PATIENT
  Age: 15 Year
  Sex: Female
  Weight: 54 kg

DRUGS (2)
  1. ABILIFY [Suspect]
     Indication: BIPOLAR DISORDER
     Route: 048
     Dates: start: 20040805
  2. ZOLOFT [Concomitant]

REACTIONS (2)
  - DIPLOPIA [None]
  - DIZZINESS [None]
